FAERS Safety Report 8305853-2 (Version None)
Quarter: 2012Q1

REPORT INFORMATION
  Report Type: 
  Country: None (occurrence: None)
  Receive Date: 20120326
  Receipt Date: 20120119
  Transmission Date: 20120608
  Serious: Yes (Hospitalization)
  Sender: FDA-Public Use
  Company Number: PHEH2012US001959

PATIENT
  Sex: Female

DRUGS (12)
  1. ADAVIN (NICERGOLINE) [Interacting]
  2. AMBIEN [Concomitant]
  3. NEXIUM [Concomitant]
  4. ALLOPURINOL [Concomitant]
  5. DIOVAN [Concomitant]
  6. TASIGNA [Suspect]
     Indication: CHRONIC MYELOID LEUKAEMIA
     Dosage: 300 MG, BID, ORAL
     Route: 048
     Dates: start: 20110527, end: 20120119
  7. LEVOTHYROXINE SODIUM [Concomitant]
  8. MORPHINE [Concomitant]
  9. OXYCODONE HCL [Concomitant]
  10. PROZAC [Concomitant]
  11. ROBAXIN [Concomitant]
  12. VOLTAREN (DICLOFENAC DIETHYLAMINE) [Concomitant]

REACTIONS (5)
  - WHITE BLOOD CELL COUNT INCREASED [None]
  - DRUG INEFFECTIVE [None]
  - WEIGHT DECREASED [None]
  - PYREXIA [None]
  - CHILLS [None]
